FAERS Safety Report 7682775-1 (Version None)
Quarter: 2011Q3

REPORT INFORMATION
  Report Type: 
  Country: None (occurrence: None)
  Receive Date: 20110815
  Receipt Date: 20110411
  Transmission Date: 20111222
  Serious: No
  Sender: FDA-Public Use
  Company Number: US-TYCO HEALTHCARE/MALLINCKRODT-T201100770

PATIENT
  Age: 74 Year
  Sex: Female
  Weight: 74.83 kg

DRUGS (3)
  1. PAMELOR [Suspect]
     Dosage: 30 MG QPM
     Dates: start: 20110201
  2. PAMELOR [Suspect]
     Dosage: 20 MG QAM, 20 MG QPM
     Dates: start: 20110101, end: 20110101
  3. PAMELOR [Suspect]
     Dosage: 30 MG QAM, 30 MG QPM
     Dates: start: 20110101

REACTIONS (3)
  - DRUG INEFFECTIVE [None]
  - INTENTIONAL DRUG MISUSE [None]
  - DRUG EFFECT DECREASED [None]
